FAERS Safety Report 5629843-3 (Version None)
Quarter: 2008Q1

REPORT INFORMATION
  Report Type: 
  Country: None (occurrence: None)
  Receive Date: 20080218
  Receipt Date: 20080207
  Transmission Date: 20080703
  Serious: Yes (Death)
  Sender: FDA-Public Use
  Company Number: US-ASTRAZENECA-2007UW02159

PATIENT
  Age: 483 Month
  Sex: Female
  Weight: 158.6 kg

DRUGS (5)
  1. SEROQUEL [Suspect]
     Indication: DEPRESSION
     Dosage: 25-200 MG
     Route: 048
     Dates: start: 20001206, end: 20060601
  2. SEROQUEL [Suspect]
     Indication: BIPOLAR DISORDER
     Dosage: 25-200 MG
     Route: 048
     Dates: start: 20001206, end: 20060601
  3. ABILIFY [Concomitant]
     Dosage: 10-30 MG
     Dates: start: 20060524
  4. HALDOL [Concomitant]
     Dates: start: 19990101, end: 20001101
  5. DEPAKOTE [Concomitant]
     Dates: start: 19990101

REACTIONS (2)
  - PULMONARY EMBOLISM [None]
  - TYPE 2 DIABETES MELLITUS [None]
